FAERS Safety Report 6940514-3 (Version None)
Quarter: 2010Q3

REPORT INFORMATION
  Report Type: 
  Country: None (occurrence: None)
  Receive Date: 20100820
  Receipt Date: 20100806
  Transmission Date: 20110219
  Serious: Yes (Other)
  Sender: FDA-Public Use
  Company Number: AUR-APL-2010-02002

PATIENT
  Age: 43 Year
  Sex: Female
  Weight: 124.2856 kg

DRUGS (22)
  1. LISINOPRIL [Suspect]
     Indication: BLOOD PRESSURE
     Dosage: 10MG - DAILY - ORAL
     Route: 048
  2. MELOXICAM [Suspect]
     Indication: PAIN
     Dosage: 15MG - BID - ORAL
     Route: 048
  3. SIMVASTATIN [Suspect]
     Indication: BLOOD CHOLESTEROL
     Dosage: 40MG - DAILY - ORAL
     Route: 048
  4. LYRICA [Suspect]
     Indication: FIBROMYALGIA
     Dosage: 150MG - TID - ORAL
     Route: 048
  5. TEGRETOL [Suspect]
     Indication: PERSONALITY DISORDER
     Dosage: 1 TAB QAM, 2 TABS QPM - ORAL
     Route: 048
  6. PROVIGIL [Suspect]
     Indication: SLEEP APNOEA SYNDROME
     Dosage: 1.5 TABS - DAILY - ORAL
     Route: 048
  7. PROPRANOLOL [Suspect]
     Indication: BLOOD PRESSURE
     Dosage: 20MG - BID - ORAL
     Route: 048
  8. CETIRIZINE TABLET [Suspect]
     Indication: HYPERSENSITIVITY
     Dosage: 10MG - DAILY - ORAL
     Route: 048
  9. METHCARBAMOL [Suspect]
     Indication: PAIN
     Dosage: 500MG - BID - ORAL
     Route: 048
  10. BACLOFEN [Suspect]
     Indication: RESTLESS LEGS SYNDROME
     Dosage: 20MG - TID - ORAL
     Route: 048
  11. METHADOSE [Suspect]
     Indication: PAIN
     Dosage: 10MG - 5 TIMES DAILY - ORAL
     Route: 048
  12. CYMBALTA [Suspect]
     Indication: DEPRESSION
     Dosage: 60 MG - BID - ORAL
     Route: 048
  13. ASPIRIN [Suspect]
     Indication: CARDIAC DISORDER
     Dosage: 81MG - DAILY - ORAL
     Route: 048
  14. LEVOTHYROXINE [Suspect]
     Indication: THYROID DISORDER
     Dosage: 50MCG - DAILY - ORAL
     Route: 048
  15. OMEPRAZOLE [Suspect]
     Indication: GASTROOESOPHAGEAL REFLUX DISEASE
     Dosage: 40MG - DAILY - ORAL
     Route: 048
  16. LIDODERM [Suspect]
     Indication: MYALGIA
     Dosage: 3 PATCHES DAILY (12HOURS ON/OFF)
  17. LEVEMIR [Suspect]
     Indication: DIABETES MELLITUS
     Dosage: 47 UNITS QAM AND QPM - SUBQ
     Route: 058
  18. FLUTICASONE SPRAY [Suspect]
     Indication: NASAL SEPTUM DEVIATION
     Dosage: NASAL
     Route: 045
     Dates: start: 20100101
  19. MIRALAX [Suspect]
     Indication: CONSTIPATION
     Dosage: 17GM - DAILY - ORAL
     Route: 048
  20. MULTI-VITAMIN [Suspect]
  21. FISH OIL [Suspect]
  22. VITAMIN E [Suspect]

REACTIONS (3)
  - CONDITION AGGRAVATED [None]
  - CONVULSION [None]
  - FIBROMYALGIA [None]
